FAERS Safety Report 24606824 (Version 2)
Quarter: 2024Q4

REPORT INFORMATION
  Report Type: Report from Study
  Country: BR (occurrence: BR)
  Receive Date: 20241112
  Receipt Date: 20241120
  Transmission Date: 20250115
  Serious: Yes (Hospitalization, Other)
  Sender: CELLTRION
  Company Number: BR-CELLTRION INC.-2023BR010449

PATIENT

DRUGS (2)
  1. INFLIXIMAB-DYYB [Suspect]
     Active Substance: INFLIXIMAB-DYYB
     Indication: Crohn^s disease
     Dosage: 8 AMPOULES EVERY 8 WEEKS
     Route: 042
     Dates: start: 20220927
  2. STELARA [Suspect]
     Active Substance: USTEKINUMAB
     Indication: Crohn^s disease
     Dosage: UNK
     Dates: start: 202402

REACTIONS (8)
  - Intestinal resection [Unknown]
  - Colostomy closure [Unknown]
  - Crohn^s disease [Recovered/Resolved]
  - Intestinal ulcer [Recovered/Resolved]
  - Tuberculosis [Recovered/Resolved]
  - Weight decreased [Unknown]
  - Therapy interrupted [Unknown]
  - Drug ineffective [Unknown]

NARRATIVE: CASE EVENT DATE: 20220101
